FAERS Safety Report 24988035 (Version 1)
Quarter: 2025Q1

REPORT INFORMATION
  Report Type: Spontaneous
  Country: US (occurrence: US)
  Receive Date: 20250220
  Receipt Date: 20250220
  Transmission Date: 20250409
  Serious: Yes (Life-Threatening, Hospitalization, Other)
  Sender: ALKEM
  Company Number: None

PATIENT
  Age: 27 Year
  Sex: Female

DRUGS (18)
  1. TACROLIMUS [Interacting]
     Active Substance: TACROLIMUS
     Indication: Immunosuppressant drug therapy
     Dosage: 3 MILLIGRAM, BID (EVERY 12 HOUR)
     Route: 065
  2. AZATHIOPRINE [Suspect]
     Active Substance: AZATHIOPRINE
     Indication: Immunosuppressant drug therapy
     Route: 065
  3. ABACAVIR [Suspect]
     Active Substance: ABACAVIR
     Indication: HIV infection
     Route: 065
  4. BETAMETHASONE [Suspect]
     Active Substance: BETAMETHASONE
     Indication: Maternal therapy to enhance foetal lung maturity
     Route: 065
  5. BIKTARVY [Suspect]
     Active Substance: BICTEGRAVIR SODIUM\EMTRICITABINE\TENOFOVIR ALAFENAMIDE FUMARATE
     Indication: HIV infection
     Route: 065
  6. DARUNAVIR [Interacting]
     Active Substance: DARUNAVIR
     Indication: HIV infection
     Dosage: 600 MILLIGRAM, BID (EVERY 12 HOUR)
     Route: 065
  7. DOLUTEGRAVIR [Suspect]
     Active Substance: DOLUTEGRAVIR
     Indication: HIV infection
     Route: 065
  8. FENTANYL [Suspect]
     Active Substance: FENTANYL
     Indication: Abdominal pain upper
     Route: 042
  9. JULUCA [Suspect]
     Active Substance: DOLUTEGRAVIR SODIUM\RILPIVIRINE HYDROCHLORIDE
     Indication: HIV infection
     Route: 065
  10. LABETALOL [Suspect]
     Active Substance: LABETALOL
     Indication: Hypertension
     Route: 065
  11. LAMIVUDINE [Suspect]
     Active Substance: LAMIVUDINE
     Indication: HIV infection
     Route: 065
  12. MAGNESIUM SULFATE [Suspect]
     Active Substance: MAGNESIUM SULFATE
     Indication: Eclampsia
     Route: 065
  13. MAGNESIUM SULFATE [Suspect]
     Active Substance: MAGNESIUM SULFATE
     Indication: Nervous system disorder prophylaxis
     Route: 065
  14. NICARDIPINE [Suspect]
     Active Substance: NICARDIPINE
     Indication: Hypertension
     Route: 065
  15. NICARDIPINE [Suspect]
     Active Substance: NICARDIPINE
     Route: 048
  16. RIFAMPIN [Suspect]
     Active Substance: RIFAMPIN
     Indication: Toxicity to various agents
     Dosage: 600 MILLIGRAM, QD
     Route: 048
  17. RIFAMPIN [Suspect]
     Active Substance: RIFAMPIN
     Indication: Immunosuppressant drug level increased
  18. RITONAVIR [Interacting]
     Active Substance: RITONAVIR
     Indication: HIV infection
     Dosage: 100 MILLIGRAM, BID
     Route: 065

REACTIONS (7)
  - Toxicity to various agents [Recovered/Resolved]
  - Drug interaction [Unknown]
  - Immunosuppressant drug level increased [Recovered/Resolved]
  - Renal impairment [Recovered/Resolved]
  - Hypertension [Recovered/Resolved]
  - Condition aggravated [Recovered/Resolved]
  - Exposure during pregnancy [Unknown]
